FAERS Safety Report 20839892 (Version 1)
Quarter: 2022Q2

REPORT INFORMATION
  Report Type: Spontaneous
  Country: AU (occurrence: AU)
  Receive Date: 20220517
  Receipt Date: 20220517
  Transmission Date: 20220721
  Serious: Yes (Death, Life-Threatening, Other)
  Sender: FDA-Public Use
  Company Number: AU-SA-SAC20220516000025

PATIENT
  Age: 43 Year
  Sex: Male

DRUGS (7)
  1. ZOLPIDEM TARTRATE [Suspect]
     Active Substance: ZOLPIDEM TARTRATE
     Dosage: UNK
  2. ALCOHOL [Suspect]
     Active Substance: ALCOHOL
     Dosage: UNK
  3. DIAZEPAM [Suspect]
     Active Substance: DIAZEPAM
     Dosage: UNK
  4. OXAZEPAM [Suspect]
     Active Substance: OXAZEPAM
     Dosage: UNK
  5. ACETAMINOPHEN\CODEINE PHOSPHATE [Suspect]
     Active Substance: ACETAMINOPHEN\CODEINE PHOSPHATE
     Dosage: UNK
  6. PROMETHAZINE HYDROCHLORIDE [Suspect]
     Active Substance: PROMETHAZINE HYDROCHLORIDE
     Dosage: UNK
  7. PROPRANOLOL HYDROCHLORIDE [Suspect]
     Active Substance: PROPRANOLOL HYDROCHLORIDE
     Dosage: UNK

REACTIONS (2)
  - Suicidal ideation [Fatal]
  - Unresponsive to stimuli [Fatal]

NARRATIVE: CASE EVENT DATE: 20191020
